FAERS Safety Report 5568501-0 (Version None)
Quarter: 2007Q4

REPORT INFORMATION
  Report Type: 
  Country: None (occurrence: None)
  Receive Date: 20071220
  Receipt Date: 20071211
  Transmission Date: 20080405
  Serious: Yes (Other)
  Sender: FDA-Public Use
  Company Number: NL-ROCHE-530746

PATIENT
  Age: 65 Year
  Sex: Female
  Weight: 80 kg

DRUGS (9)
  1. XENICAL [Suspect]
     Route: 048
     Dates: start: 20061212, end: 20070108
  2. PANTOPRAZOLE SODIUM [Concomitant]
     Dosage: DOSAGE: QD
     Route: 048
     Dates: start: 20030101
  3. CALCICHEW D3 [Concomitant]
     Dosage: STRENGTH: 500MG/400IU
     Route: 048
     Dates: start: 20060101
  4. COZAAR [Concomitant]
     Route: 048
     Dates: start: 20030101
  5. FUROSEMIDE [Concomitant]
     Route: 048
     Dates: start: 20050501
  6. DIAZEPAM [Concomitant]
  7. ATROVENT [Concomitant]
  8. SYMBICORT [Concomitant]
  9. CLAVUCID [Concomitant]
     Indication: BRONCHITIS
     Dosage: DRUG REPORTED AS CLACID

REACTIONS (3)
  - GRANULOMA [None]
  - NECROSIS [None]
  - WEIGHT LOSS POOR [None]
